FAERS Safety Report 10151859 (Version 1)
Quarter: 2014Q2

REPORT INFORMATION
  Report Type: Spontaneous
  Country: US (occurrence: None)
  Receive Date: 20140501
  Receipt Date: 20140501
  Transmission Date: 20141212
  Serious: Yes (Hospitalization)
  Sender: FDA-Public Use
  Company Number: 14-102

PATIENT
  Age: 06 Month
  Sex: Female
  Weight: 7.26 kg

DRUGS (3)
  1. SUCRAID [Suspect]
     Indication: SUCRASE-ISOMALTASE DEFICIENCY
     Dosage: 1 ML MEAL/SNACK BY MOUTH
     Route: 048
     Dates: start: 20140415, end: 20140416
  2. SUCRAID [Suspect]
     Dosage: 1 ML MEAL/SNACK BY MOUTH
     Route: 048
     Dates: start: 20140415, end: 20140416
  3. TRIAMCINOLONE ACETONIDE [Concomitant]

REACTIONS (6)
  - Rash [None]
  - Urticaria [None]
  - Skin exfoliation [None]
  - Dry skin [None]
  - Wheezing [None]
  - Skin irritation [None]
